FAERS Safety Report 5785357-1 (Version None)
Quarter: 2008Q2

REPORT INFORMATION
  Report Type: 
  Country: None (occurrence: None)
  Receive Date: 20080605
  Receipt Date: 20080327
  Transmission Date: 20081010
  Serious: No
  Sender: FDA-Public Use
  Company Number: A0710232A

PATIENT
  Sex: Female

DRUGS (1)
  1. ALLI [Suspect]

REACTIONS (9)
  - DIARRHOEA [None]
  - FEELING ABNORMAL [None]
  - GASTROINTESTINAL DISORDER [None]
  - HERPES ZOSTER [None]
  - IMMUNE SYSTEM DISORDER [None]
  - INFLUENZA [None]
  - PAIN [None]
  - THERAPEUTIC RESPONSE UNEXPECTED [None]
  - WEIGHT INCREASED [None]
